FAERS Safety Report 11037909 (Version 1)
Quarter: 2015Q2

REPORT INFORMATION
  Report Type: Spontaneous
  Country: US (occurrence: US)
  Receive Date: 20150416
  Receipt Date: 20150416
  Transmission Date: 20150821
  Serious: No
  Sender: FDA-Public Use
  Company Number: US-DRREDDYS-USA/USA/15/0046485

PATIENT
  Sex: Female
  Weight: 54.4 kg

DRUGS (2)
  1. ZENATANE [Suspect]
     Active Substance: ISOTRETINOIN
     Indication: ACNE
     Route: 048
  2. ZENATANE [Suspect]
     Active Substance: ISOTRETINOIN
     Route: 048

REACTIONS (3)
  - Drug dispensing error [Unknown]
  - Incorrect dose administered [Unknown]
  - No adverse event [Unknown]
